FAERS Safety Report 9798219 (Version 1)
Quarter: 2014Q1

REPORT INFORMATION
  Report Type: Spontaneous
  Country: US (occurrence: None)
  Receive Date: 20140102
  Receipt Date: 20140102
  Transmission Date: 20141002
  Serious: Yes (Hospitalization)
  Sender: FDA-Public Use
  Company Number: None

PATIENT
  Age: 66 Year
  Sex: Male
  Weight: 89.9 kg

DRUGS (1)
  1. HYDROCHLOROTHIAZIDE/LOSARTAN [Suspect]
     Indication: HYPERTENSION
     Route: 048
     Dates: start: 20130122, end: 20130906

REACTIONS (3)
  - Hyponatraemia [None]
  - Convulsion [None]
  - Polydipsia [None]
